FAERS Safety Report 13081589 (Version 2)
Quarter: 2017Q2

REPORT INFORMATION
  Report Type: Spontaneous
  Country: US (occurrence: US)
  Receive Date: 20170103
  Receipt Date: 20170606
  Transmission Date: 20170830
  Serious: No
  Sender: FDA-Public Use
  Company Number: US-PFIZER INC-2016594697

PATIENT
  Age: 62 Year
  Sex: Female

DRUGS (1)
  1. XELJANZ [Suspect]
     Active Substance: TOFACITINIB CITRATE
     Indication: RHEUMATOID ARTHRITIS
     Dosage: 5 MG

REACTIONS (5)
  - Pain [Unknown]
  - Myalgia [Unknown]
  - Hand deformity [Unknown]
  - Peripheral swelling [Unknown]
  - Upper respiratory tract infection [Unknown]
